FAERS Safety Report 9561984 (Version 1)
Quarter: 2013Q3

REPORT INFORMATION
  Report Type: Spontaneous
  Country: GB (occurrence: None)
  Receive Date: 20130925
  Receipt Date: 20130925
  Transmission Date: 20140515
  Serious: Yes (Life-Threatening, Hospitalization, Other)
  Sender: FDA-Public Use
  Company Number: GER/UKI/13/0034579

PATIENT
  Age: 50 Year
  Sex: Female
  Weight: 72 kg

DRUGS (7)
  1. CIPROFLOXACIN (CIPROFLOXACIN) [Suspect]
     Indication: BLADDER PAIN
     Dosage: 1 DOSAGE FORMS, 2 IN 1 D, ORAL
     Route: 048
     Dates: start: 20110101, end: 20110107
  2. CIPROFLOXACIN (CIPROFLOXACIN) [Suspect]
     Indication: URINARY TRACT INFECTION
     Dosage: 1 DOSAGE FORMS, 2 IN 1 D, ORAL
     Route: 048
     Dates: start: 20110101, end: 20110107
  3. OMEPRAZOLE (OMEPRAZOLE) [Suspect]
     Indication: PRODUCT USED FOR UNKNOWN INDICATION
  4. IBUPROFEN (IBUPROFEN) [Suspect]
     Indication: PAIN
     Dosage: 400 MG, 3 IN 1 D, ORAL
     Route: 048
     Dates: start: 20101231
  5. AUGMENTIN (AUGMENTIN /00756801/) [Concomitant]
  6. OXYCONTIN (OXYCODONE HYDROCHLORIDE) [Concomitant]
  7. TRIMETHOPRIM (TRIMETHOPRIM) [Concomitant]

REACTIONS (24)
  - Sensory disturbance [None]
  - Balance disorder [None]
  - Cognitive disorder [None]
  - Formication [None]
  - Dry eye [None]
  - Paraesthesia [None]
  - Vitreous floaters [None]
  - Headache [None]
  - Neuropathy peripheral [None]
  - Photophobia [None]
  - Photosensitivity reaction [None]
  - Psychomotor skills impaired [None]
  - Sleep disorder [None]
  - Hyperacusis [None]
  - Disorientation [None]
  - Hypersensitivity [None]
  - Cachexia [None]
  - Musculoskeletal stiffness [None]
  - Aphasia [None]
  - Feeling abnormal [None]
  - Breast pain [None]
  - Contusion [None]
  - Arthralgia [None]
  - Alopecia [None]
